FAERS Safety Report 23482393 (Version 1)
Quarter: 2024Q1

REPORT INFORMATION
  Report Type: Report from Study
  Country: FR (occurrence: FR)
  Receive Date: 20240205
  Receipt Date: 20240205
  Transmission Date: 20240410
  Serious: Yes (Other)
  Sender: FDA-Public Use
  Company Number: FR-AstraZeneca-2023A135101

PATIENT
  Sex: Female
  Weight: 71 kg

DRUGS (4)
  1. GEMCITABINE HYDROCHLORIDE [Suspect]
     Active Substance: GEMCITABINE HYDROCHLORIDE
     Indication: Bile duct cancer
     Dosage: UNK
     Dates: start: 20230331
  2. CISPLATIN [Suspect]
     Active Substance: CISPLATIN
     Indication: Bile duct cancer
     Dosage: UNK
  3. IMFINZI [Suspect]
     Active Substance: DURVALUMAB
     Indication: Bile duct cancer
     Dosage: 1500 MG, EVERY 3 WEEKS
     Dates: start: 20230331
  4. IMFINZI [Suspect]
     Active Substance: DURVALUMAB
     Dosage: 1500 MG
     Dates: start: 20230602

REACTIONS (1)
  - Toxicity to various agents [Recovered/Resolved]
